FAERS Safety Report 9891499 (Version 2)
Quarter: 2014Q1

REPORT INFORMATION
  Report Type: Spontaneous
  Country: PL (occurrence: PL)
  Receive Date: 20140212
  Receipt Date: 20140217
  Transmission Date: 20141002
  Serious: Yes (Hospitalization, Other)
  Sender: FDA-Public Use
  Company Number: PHHY2014PL013219

PATIENT
  Sex: Male

DRUGS (3)
  1. OCTREOTIDE [Suspect]
     Indication: PITUITARY TUMOUR BENIGN
     Dosage: 30 MG, EVERY 28 DAYS
  2. BROMOCRIPTINE [Concomitant]
     Dosage: 30 MG PER DAY
  3. L-THYROXIN [Concomitant]
     Dosage: 15 UG PER DAY

REACTIONS (6)
  - Hypertension [Unknown]
  - Benign prostatic hyperplasia [Unknown]
  - Hypercholesterolaemia [Unknown]
  - Goitre [Unknown]
  - Hypertensive angiopathy [Unknown]
  - Glucose tolerance impaired [Unknown]
